FAERS Safety Report 7523429-1 (Version None)
Quarter: 2011Q2

REPORT INFORMATION
  Report Type: 
  Country: None (occurrence: None)
  Receive Date: 20110603
  Receipt Date: 20110524
  Transmission Date: 20111010
  Serious: Yes (Hospitalization)
  Sender: FDA-Public Use
  Company Number: BR-MEDIMMUNE-MEDI-0013247

PATIENT
  Sex: Female
  Weight: 9.5 kg

DRUGS (2)
  1. SYNAGIS [Suspect]
     Route: 030
     Dates: start: 20100619, end: 20100619
  2. SYNAGIS [Suspect]
     Route: 030
     Dates: start: 20110518, end: 20110518

REACTIONS (7)
  - PNEUMONIA [None]
  - INCREASED BRONCHIAL SECRETION [None]
  - LARYNGITIS [None]
  - NASOPHARYNGITIS [None]
  - COUGH [None]
  - PYREXIA [None]
  - VOMITING [None]
